FAERS Safety Report 7738738-0 (Version None)
Quarter: 2011Q3

REPORT INFORMATION
  Report Type: 
  Country: None (occurrence: None)
  Receive Date: 20110908
  Receipt Date: 20110905
  Transmission Date: 20111222
  Serious: No
  Sender: FDA-Public Use
  Company Number: US-PFIZER INC-2011171734

PATIENT
  Sex: Female

DRUGS (2)
  1. CHILDREN'S ADVIL COLD [Suspect]
     Dosage: UNK, AS NEEDED
     Route: 048
     Dates: start: 20110727
  2. LOESTRIN 1.5/30 [Concomitant]
     Dosage: UNK

REACTIONS (1)
  - THROAT IRRITATION [None]
